FAERS Safety Report 19698957 (Version 1)
Quarter: 2021Q3

REPORT INFORMATION
  Report Type: Spontaneous
  Country: US (occurrence: US)
  Receive Date: 20210813
  Receipt Date: 20210813
  Transmission Date: 20211014
  Serious: No
  Sender: FDA-Public Use
  Company Number: US-PFIZER INC-202100910269

PATIENT
  Age: 68 Year
  Sex: Male
  Weight: 83.91 kg

DRUGS (1)
  1. PHENYTOIN SODIUM. [Suspect]
     Active Substance: PHENYTOIN SODIUM
     Indication: SEIZURE
     Dosage: 100 MG, 3X/DAY (100MG, THREE TIMES A DAY)
     Route: 048

REACTIONS (1)
  - Drug ineffective [Unknown]
